FAERS Safety Report 5755886-5 (Version None)
Quarter: 2008Q2

REPORT INFORMATION
  Report Type: 
  Country: None (occurrence: None)
  Receive Date: 20080602
  Receipt Date: 20080521
  Transmission Date: 20081010
  Serious: Yes (Hospitalization)
  Sender: FDA-Public Use
  Company Number: GB-TEVA-171938ISR

PATIENT
  Age: 25 Year
  Sex: Female
  Weight: 84 kg

DRUGS (1)
  1. CEPHALEXIN [Suspect]
     Indication: URINARY TRACT INFECTION
     Route: 048
     Dates: start: 20080425, end: 20080429

REACTIONS (7)
  - BLISTER [None]
  - CONTUSION [None]
  - FLUID RETENTION [None]
  - HYPOAESTHESIA FACIAL [None]
  - MOUTH ULCERATION [None]
  - SWELLING FACE [None]
  - YELLOW SKIN [None]
